FAERS Safety Report 5602065-8 (Version None)
Quarter: 2008Q1

REPORT INFORMATION
  Report Type: 
  Country: None (occurrence: None)
  Receive Date: 20080122
  Receipt Date: 20080122
  Transmission Date: 20080703
  Serious: Yes (Other)
  Sender: FDA-Public Use
  Company Number: None

PATIENT

DRUGS (4)
  1. BSS [Suspect]
     Indication: CATARACT OPERATION
     Dates: start: 20080103, end: 20080103
  2. DUOVISV VISCOELASTIC ALCON [Suspect]
     Indication: CATARACT OPERATION
     Dates: start: 20080103, end: 20080103
  3. DUOVISV VISCOELASTIC ALCON [Suspect]
  4. EPINEPHERINE [Concomitant]

REACTIONS (4)
  - ENDOPHTHALMITIS [None]
  - PHARMACEUTICAL PRODUCT COMPLAINT [None]
  - POST PROCEDURAL COMPLICATION [None]
  - THERAPEUTIC PRODUCT CONTAMINATION [None]
